FAERS Safety Report 19364208 (Version 1)
Quarter: 2021Q2

REPORT INFORMATION
  Report Type: Spontaneous
  Country: US (occurrence: US)
  Receive Date: 20210602
  Receipt Date: 20210602
  Transmission Date: 20210717
  Serious: Yes (Other)
  Sender: FDA-Public Use
  Company Number: US-MYLANLABS-2021M1031503

PATIENT
  Age: 70 Year
  Sex: Female

DRUGS (13)
  1. DEXAMETHASONE. [Suspect]
     Active Substance: DEXAMETHASONE
     Dosage: 12 MILLIGRAM
     Route: 042
  2. INSULIN DETEMIR [Concomitant]
     Active Substance: INSULIN DETEMIR
     Indication: HYPOGLYCAEMIA
     Dosage: DECREASED TO 50 UNITS IN THE AM AND 30..
     Route: 065
  3. PACLITAXEL. [Concomitant]
     Active Substance: PACLITAXEL
     Indication: PANCREATIC CARCINOMA METASTATIC
     Dosage: 220 MILLIGRAMON EVERY OTHER WEDNESDAY
     Route: 042
  4. FLUOROURACIL. [Concomitant]
     Active Substance: FLUOROURACIL
     Indication: PANCREATIC CARCINOMA METASTATIC
     Dosage: 2700 MILLIGRAM
     Route: 065
  5. INSULIN DETEMIR [Concomitant]
     Active Substance: INSULIN DETEMIR
     Dosage: BASED ON THE CGM REPORTS, A HIGHER INSULIN REGIMEN WAS PRESCRIBED..
     Route: 065
  6. INSULIN LISPRO [Concomitant]
     Active Substance: INSULIN LISPRO
     Indication: TYPE 2 DIABETES MELLITUS
     Dosage: 5 UNITS
     Route: 065
  7. INSULIN LISPRO [Concomitant]
     Active Substance: INSULIN LISPRO
     Dosage: BASED ON THE CGM REPORTS, A HIGHER INSULIN REGIMEN WAS PRESCRIBED ON HER CHEMOTHERAP..
     Route: 065
  8. PIOGLITAZONE. [Concomitant]
     Active Substance: PIOGLITAZONE
     Indication: TYPE 2 DIABETES MELLITUS
     Dosage: 15 MILLIGRAM, QD
     Route: 065
  9. INSULIN DETEMIR [Concomitant]
     Active Substance: INSULIN DETEMIR
     Dosage: BEDTIME DETEMIR INSULIN WAS INCREASED FROM 30 TO 45 UNITS...
     Route: 065
  10. GEMCITABINE. [Concomitant]
     Active Substance: GEMCITABINE
     Indication: PANCREATIC CARCINOMA METASTATIC
     Dosage: 2200 MILLIGRAM ON EVERY OTHER WEDNESDAY
     Route: 042
  11. INSULIN DETEMIR [Concomitant]
     Active Substance: INSULIN DETEMIR
     Indication: TYPE 2 DIABETES MELLITUS
     Dosage: LONG?ACTING INSULIN DETEMIR 50 UNITS EVERY 12H
     Route: 065
  12. DEXAMETHASONE. [Suspect]
     Active Substance: DEXAMETHASONE
     Indication: PANCREATIC CARCINOMA METASTATIC
     Dosage: 8 MILLIGRAM ON EVERY OTHER WEDNESDAY
     Route: 042
  13. INSULIN LISPRO [Concomitant]
     Active Substance: INSULIN LISPRO
     Dosage: INCREASED TO 15 UNITS WITH AN ADDITIONAL..
     Route: 065

REACTIONS (1)
  - Hyperglycaemia [Recovering/Resolving]
